FAERS Safety Report 7293837-5 (Version None)
Quarter: 2011Q1

REPORT INFORMATION
  Report Type: 
  Country: None (occurrence: None)
  Receive Date: 20110215
  Receipt Date: 20110203
  Transmission Date: 20110831
  Serious: Yes (Death)
  Sender: FDA-Public Use
  Company Number: DE-PFIZER INC-2010174643

PATIENT
  Sex: Female

DRUGS (7)
  1. AMIODARONE HCL [Suspect]
  2. SIMVASTATIN [Concomitant]
     Indication: HYPERCHOLESTEROLAEMIA
  3. AMIODARONE HCL [Suspect]
     Indication: ATRIAL FIBRILLATION
     Dosage: 200 MG, DAILY
     Route: 048
  4. RAMIPRIL [Concomitant]
     Indication: HYPERTENSION
  5. TORASEMIDE [Concomitant]
     Indication: RENAL FAILURE
  6. VIT K ANTAGONISTS [Concomitant]
  7. CALCIUM CHANNEL BLOCKERS [Concomitant]

REACTIONS (1)
  - SUDDEN CARDIAC DEATH [None]
